FAERS Safety Report 16203724 (Version 2)
Quarter: 2020Q4

REPORT INFORMATION
  Report Type: Report from Study
  Country: CO (occurrence: CO)
  Receive Date: 20190416
  Receipt Date: 20201111
  Transmission Date: 20210113
  Serious: Yes (Other)
  Sender: FDA-Public Use
  Company Number: PHHY2019CO084719

PATIENT
  Age: 40 Year
  Sex: Male

DRUGS (1)
  1. COSENTYX [Suspect]
     Active Substance: SECUKINUMAB
     Indication: PSORIASIS
     Dosage: 300 MG, QMO
     Route: 058
     Dates: start: 20171114

REACTIONS (5)
  - Erythema [Unknown]
  - Pain in extremity [Unknown]
  - Injury [Unknown]
  - Cellulitis [Unknown]
  - Skin plaque [Unknown]

NARRATIVE: CASE EVENT DATE: 20190330
